FAERS Safety Report 6865497-6 (Version None)
Quarter: 2010Q3

REPORT INFORMATION
  Report Type: 
  Country: None (occurrence: None)
  Receive Date: 20100721
  Receipt Date: 20080521
  Transmission Date: 20110219
  Serious: No
  Sender: FDA-Public Use
  Company Number: US-PFIZER INC-2008034809

PATIENT
  Sex: Female
  Weight: 263.6 kg

DRUGS (6)
  1. CHANTIX [Suspect]
     Indication: SMOKING CESSATION THERAPY
     Dates: start: 20080410
  2. AZOR [Concomitant]
  3. HYDROCHLOROTHIAZIDE [Concomitant]
  4. ALBUTEROL [Concomitant]
     Indication: WHEEZING
     Route: 055
  5. PLAVIX [Concomitant]
  6. NEXIUM [Concomitant]

REACTIONS (1)
  - ANXIETY [None]
